FAERS Safety Report 15482760 (Version 1)
Quarter: 2018Q4

REPORT INFORMATION
  Report Type: Spontaneous
  Country: US (occurrence: US)
  Receive Date: 20181003
  Receipt Date: 20181003
  Transmission Date: 20190205
  Serious: Yes (Hospitalization)
  Sender: FDA-Public Use
  Company Number: None

PATIENT
  Age: 52 Year
  Sex: Female

DRUGS (4)
  1. EFFEXOR [Concomitant]
     Active Substance: VENLAFAXINE HYDROCHLORIDE
  2. FEMARA [Concomitant]
     Active Substance: LETROZOLE
  3. LORAZEPAM. [Concomitant]
     Active Substance: LORAZEPAM
  4. IBRANCE [Suspect]
     Active Substance: PALBOCICLIB
     Indication: METASTASES TO BONE
     Route: 048
     Dates: start: 20161215

REACTIONS (1)
  - Knee operation [None]

NARRATIVE: CASE EVENT DATE: 20181002
